FAERS Safety Report 5283189-4 (Version None)
Quarter: 2007Q2

REPORT INFORMATION
  Report Type: 
  Country: None (occurrence: None)
  Receive Date: 20070402
  Receipt Date: 20070327
  Transmission Date: 20071010
  Serious: Yes (Other)
  Sender: FDA-Public Use
  Company Number: US-GLAXOSMITHKLINE-A0645307A

PATIENT
  Age: 42 Year
  Sex: Female

DRUGS (5)
  1. LAMICTAL [Suspect]
     Dosage: 250MG PER DAY
     Dates: start: 20060913, end: 20061227
  2. PROZAC [Concomitant]
     Dosage: 20MG PER DAY
     Dates: start: 20060913, end: 20061227
  3. ALCOHOL [Concomitant]
     Dates: end: 20061109
  4. TOBACCO [Concomitant]
  5. MARIJUANA [Concomitant]

REACTIONS (1)
  - ABORTION SPONTANEOUS [None]
